FAERS Safety Report 10586907 (Version 1)
Quarter: 2014Q4

REPORT INFORMATION
  Report Type: Spontaneous
  Country: US (occurrence: None)
  Receive Date: 20141114
  Receipt Date: 20141114
  Transmission Date: 20150529
  Serious: Yes (Hospitalization)
  Sender: FDA-Public Use
  Company Number: None

PATIENT
  Age: 16 Year
  Sex: Male
  Weight: 70.76 kg

DRUGS (1)
  1. DOXYCYCLINE HYCLATE. [Suspect]
     Active Substance: DOXYCYCLINE HYCLATE
     Indication: ACNE
     Dosage: MONDAY,WEDNESDAY, FRIDAY, SUNDAY.
     Dates: start: 20141107, end: 20141109

REACTIONS (5)
  - Dehydration [None]
  - Oesophageal ulcer [None]
  - Feeding disorder [None]
  - Fluid intake reduced [None]
  - Weight decreased [None]

NARRATIVE: CASE EVENT DATE: 20141112
